FAERS Safety Report 9442631 (Version 1)
Quarter: 2013Q3

REPORT INFORMATION
  Report Type: Spontaneous
  Country: BR (occurrence: BR)
  Receive Date: 20130806
  Receipt Date: 20130806
  Transmission Date: 20140515
  Serious: Yes (Other)
  Sender: FDA-Public Use
  Company Number: BR-PFIZER INC-2013223590

PATIENT
  Age: 75 Year
  Sex: Female

DRUGS (1)
  1. XALATAN [Suspect]
     Indication: GLAUCOMA
     Dosage: 1 DROP IN EACH EYE 1X/DAY
     Route: 047
     Dates: start: 201306

REACTIONS (3)
  - Pneumonia [Recovering/Resolving]
  - Cardiac disorder [Unknown]
  - Thyroid disorder [Unknown]
